FAERS Safety Report 8815376 (Version 2)
Quarter: 2012Q4

REPORT INFORMATION
  Report Type: 
  Country: US (occurrence: US)
  Receive Date: 20120928
  Receipt Date: 20121017
  Transmission Date: 20130627
  Serious: No
  Sender: FDA-Public Use
  Company Number: US-PFIZER INC-2012240767

PATIENT
  Sex: Male

DRUGS (2)
  1. GEODON [Suspect]
     Dosage: 20 mg, UNK
  2. GEODON [Suspect]
     Dosage: 80 mg, UNK

REACTIONS (1)
  - Insomnia [Unknown]
